FAERS Safety Report 24759256 (Version 1)
Quarter: 2024Q4

REPORT INFORMATION
  Report Type: Spontaneous
  Country: ES (occurrence: ES)
  Receive Date: 20241220
  Receipt Date: 20241220
  Transmission Date: 20250114
  Serious: Yes (Hospitalization)
  Sender: RANBAXY
  Company Number: ES-002147023-PHHO2013ES009329

PATIENT
  Age: 85 Year
  Sex: Male

DRUGS (16)
  1. CLOPIDOGREL [Suspect]
     Active Substance: CLOPIDOGREL BISULFATE
     Indication: Atrial fibrillation
     Dosage: 75 MILLIGRAM, DAILY, 75 MG, QD || DOSE UNIT FREQUENCY: 75 MG-MILLIGRAMS || SERVING SIZE: 75 MG-MILLI
     Route: 048
     Dates: start: 20120331, end: 20130711
  2. ENALAPRIL [Suspect]
     Active Substance: ENALAPRIL
     Indication: Cardiac failure
     Dosage: CODE NOT BROKEN
     Route: 048
     Dates: start: 20101202, end: 20130404
  3. SINTROM [Suspect]
     Active Substance: ACENOCOUMAROL
     Indication: Atrial fibrillation
     Dosage: VARIABLE DOSE/CHANGEABLE DOSE
     Route: 065
     Dates: end: 20140528
  4. BENZENE [Suspect]
     Active Substance: BENZENE
     Indication: Cardiac failure
     Dosage: CODE NOT BROKEN
     Route: 048
     Dates: start: 20101202, end: 20130404
  5. FUROSEMIDE [Concomitant]
     Active Substance: FUROSEMIDE
     Indication: Cardiac failure chronic
     Dosage: 40 MILLIGRAM, TID, 40 MG, TID || DOSE UNIT FREQUENCY: 120 MG-MILLIGRAMS || SERVING SIZE: 40 MG-MILLI
     Route: 048
     Dates: start: 20110915, end: 20130711
  6. BISOPROLOL [Concomitant]
     Active Substance: BISOPROLOL
     Indication: Atrial fibrillation
     Dosage: 5 MILLIGRAM, DAILY, 5 MG, QD || DOSE UNIT FREQUENCY: 5 MG-MILLIGRAMS || DOSE PER SERVING: 5 MG-MILLI
     Route: 048
     Dates: end: 20130711
  7. ATORVASTATIN [Concomitant]
     Active Substance: ATORVASTATIN
     Indication: Dyslipidaemia
     Dosage: 80 MILLIGRAM, DAILY, 80 MG, QD || DOSE UNIT FREQUENCY: 80 MG-MILLIGRAMS || DOSE PER SERVING: 80 MG-M
     Route: 048
     Dates: end: 20130711
  8. CHLORTHALIDONE [Concomitant]
     Active Substance: CHLORTHALIDONE
     Indication: Cardiac failure chronic
     Dosage: 25 MILLIGRAM, DAILY, 25 MG, QD || DOSE UNIT FREQUENCY: 25 MG-MILLIGRAMS || SERVING SIZE: 25 MG-MILLI
     Route: 048
     Dates: start: 20140409, end: 20140515
  9. INSULIN NOS [Concomitant]
     Active Substance: INSULIN NOS
     Indication: Type 2 diabetes mellitus
     Dosage: VARIABLE DOSE
     Route: 065
  10. OXYGEN [Concomitant]
     Active Substance: OXYGEN
     Indication: Cardiac failure chronic
     Dosage: VARIABLE DOSE
     Route: 065
     Dates: start: 20130712
  11. ENALAPRIL [Concomitant]
     Active Substance: ENALAPRIL
     Indication: Atrial fibrillation
     Dosage: 10 MILLIGRAM, BID, 10 MG, BID || DOSE UNIT FREQUENCY: 20 MG-MILLIGRAMS || DOSE PER SERVING: 10 MG-MI
     Route: 048
     Dates: start: 20130405, end: 20130711
  12. EPLERENONE [Concomitant]
     Active Substance: EPLERENONE
     Indication: Oedema peripheral
     Dosage: 25 MILLIGRAM, DAILY, 25 MG, QD || DOSE UNIT FREQUENCY: 25 MG-MILLIGRAMS || SERVING SIZE: 25 MG-MILLI
     Route: 048
     Dates: start: 20130628, end: 20130711
  13. CARVEDILOL [Concomitant]
     Active Substance: CARVEDILOL
     Indication: Atrial fibrillation
     Dosage: 6.13 MILLIGRAM, BID, 6,125 MG, IDB || DOSE UNIT FREQUENCY: 12.25 MG-MILLIGRAMS || DOSE PER SERVING:
     Route: 048
     Dates: start: 20130713
  14. DUPHALAC [Concomitant]
     Active Substance: LACTULOSE
     Indication: Constipation
     Dosage: ON DEMAND
     Route: 065
     Dates: start: 20101202
  15. FLUIMUCIL [Concomitant]
     Active Substance: ACETYLCYSTEINE
     Indication: Prophylaxis
     Dosage: 600 MILLIGRAM, DAILY, 600 MG, QD || DOSAGE UNIT FREQUENCY: 600 MG-MILLIGRAMS || DOSAGE PER SERVING:
     Route: 048
     Dates: start: 20130723, end: 20131220
  16. RAMIPRIL [Concomitant]
     Active Substance: RAMIPRIL
     Indication: Cardiac failure chronic
     Dosage: 2.5 GRAM, DAILY
     Route: 048
     Dates: start: 20130722, end: 20131022

REACTIONS (6)
  - Bronchitis [Recovered/Resolved]
  - Epistaxis [Recovered/Resolved]
  - Lower respiratory tract infection [Recovered/Resolved]
  - Respiratory failure [Recovered/Resolved]
  - Haematuria [Recovered/Resolved]
  - Cardiac failure chronic [Recovered/Resolved]

NARRATIVE: CASE EVENT DATE: 20130618
